FAERS Safety Report 7152496-2 (Version None)
Quarter: 2010Q4

REPORT INFORMATION
  Report Type: 
  Country: None (occurrence: None)
  Receive Date: 20101213
  Receipt Date: 20101209
  Transmission Date: 20110411
  Serious: Yes (Other)
  Sender: FDA-Public Use
  Company Number: US-PFIZER INC-2010168613

PATIENT

DRUGS (1)
  1. RAPAMUNE [Suspect]
     Dosage: UNK
     Route: 048

REACTIONS (2)
  - OEDEMA PERIPHERAL [None]
  - SKIN CANCER [None]
